FAERS Safety Report 18295465 (Version 5)
Quarter: 2021Q2

REPORT INFORMATION
  Report Type: Report from Study
  Country: US (occurrence: US)
  Receive Date: 20200922
  Receipt Date: 20210609
  Transmission Date: 20210717
  Serious: Yes (Other)
  Sender: FDA-Public Use
  Company Number: NVSC2020US257870

PATIENT
  Sex: Female

DRUGS (1)
  1. PIQRAY [Suspect]
     Active Substance: ALPELISIB
     Indication: PRODUCT USED FOR UNKNOWN INDICATION
     Dosage: UNK
     Route: 048

REACTIONS (10)
  - Hepatic cancer [Unknown]
  - Throat irritation [Unknown]
  - Hyperglycaemia [Unknown]
  - Seasonal allergy [Unknown]
  - Product dose omission issue [Unknown]
  - Stomatitis [Unknown]
  - Breast cancer stage IV [Unknown]
  - Pruritus [Unknown]
  - Dysphagia [Unknown]
  - Fatigue [Not Recovered/Not Resolved]
